FAERS Safety Report 5383577-1 (Version None)
Quarter: 2007Q3

REPORT INFORMATION
  Report Type: 
  Country: None (occurrence: None)
  Receive Date: 20070706
  Receipt Date: 20070620
  Transmission Date: 20080115
  Serious: Yes (Death)
  Sender: FDA-Public Use
  Company Number: B0477086B

PATIENT
  Sex: 0

DRUGS (2)
  1. AMOXICILLIN TRIHYDRATE (GENERIC) (AMOXICILLIN) [Suspect]
     Indication: STREPTOCOCCAL BACTERAEMIA
     Dosage: TRANSPLACENTARY
     Route: 064
  2. ANESTH. FOR OP PROCEDURE (ANESTH. FOR OP.PROCEDURE) [Suspect]
     Indication: CAESAREAN SECTION
     Dosage: TRANSPLACENTARY
     Route: 064

REACTIONS (4)
  - BRADYCARDIA FOETAL [None]
  - CAESAREAN SECTION [None]
  - DRUG EXPOSURE DURING PREGNANCY [None]
  - ENCEPHALOPATHY NEONATAL [None]
